FAERS Safety Report 9784099 (Version 2)
Quarter: 2014Q1

REPORT INFORMATION
  Report Type: Spontaneous
  Country: US (occurrence: US)
  Receive Date: 20131226
  Receipt Date: 20140225
  Transmission Date: 20141002
  Serious: Yes (Other)
  Sender: FDA-Public Use
  Company Number: US-PFIZER INC-2013369450

PATIENT
  Age: 74 Year
  Sex: Female

DRUGS (12)
  1. LYRICA [Suspect]
     Dosage: 50 MG, 3X/DAY
     Route: 048
     Dates: start: 200606
  2. AMLODIPINE [Concomitant]
     Dosage: 10 MG, 1X/DAY
  3. LISINOPRIL [Concomitant]
     Dosage: 20 MG, 1X/DAY
  4. HYDROCODONE [Concomitant]
     Dosage: UNK, 5-500 MG 3 DAILY
  5. METFORMIN [Concomitant]
     Dosage: 500 MG, 3X/DAY
  6. BAYER ASPIRIN [Concomitant]
     Dosage: 81 MG, 1X/DAY
  7. NEURONTIN [Concomitant]
     Dosage: 600 MG, 4X/DAY
  8. LAMOTRIGINE [Concomitant]
     Dosage: 100 MG, 2X/DAY
  9. BYSTOLIC [Concomitant]
     Dosage: 5 MG, 1X/DAY
  10. EFFIENT [Concomitant]
     Dosage: 10 MG, 1X/DAY
  11. LASIX [Concomitant]
     Dosage: 20 MG, 1X/DAY
  12. LOVASTATIN [Concomitant]
     Dosage: 20 MG, 1X/DAY

REACTIONS (1)
  - Myocardial infarction [Recovering/Resolving]
